FAERS Safety Report 10482428 (Version 2)
Quarter: 2014Q4

REPORT INFORMATION
  Report Type: Report from Study
  Country: CA (occurrence: CA)
  Receive Date: 20140929
  Receipt Date: 20141202
  Transmission Date: 20150528
  Serious: Yes (Other)
  Sender: FDA-Public Use
  Company Number: CA-SA-2014SA133172

PATIENT
  Age: 55 Year
  Sex: Female

DRUGS (3)
  1. AUBAGIO [Suspect]
     Active Substance: TERIFLUNOMIDE
     Indication: RELAPSING-REMITTING MULTIPLE SCLEROSIS
     Route: 048
     Dates: start: 20140805
  2. PROVERA [Concomitant]
     Active Substance: MEDROXYPROGESTERONE ACETATE
  3. TAMOXIFEN [Concomitant]
     Active Substance: TAMOXIFEN
     Indication: CANCER IN REMISSION
     Route: 048

REACTIONS (1)
  - Colitis microscopic [Not Recovered/Not Resolved]

NARRATIVE: CASE EVENT DATE: 20140826
